FAERS Safety Report 6996352 (Version 2)
Quarter: 2013Q1

REPORT INFORMATION
  Report Type: Spontaneous
  Country: US (occurrence: US)
  Receive Date: 20090518
  Receipt Date: 20130213
  Transmission Date: 20140127
  Serious: Yes (Other)
  Sender: FDA-Public Use
  Company Number: PHHY2009US17561

PATIENT
  Age: 63 Year
  Sex: Female

DRUGS (14)
  1. OLIZUMAB [Suspect]
     Indication: ASTHMA
     Dosage: 300 MG, UNK
  2. OLIZUMAB [Suspect]
     Dosage: UNK
  3. OLIZUMAB [Suspect]
     Dosage: UNK
  4. DICLOFENAC [Suspect]
  5. MONTELUKAST [Concomitant]
  6. ALBUTEROL [Concomitant]
  7. CROMOLYN [Concomitant]
  8. BECLOMETHASONE DIPROPIONATE [Concomitant]
  9. CETRIZINE [Concomitant]
  10. FLUTICASONE [Concomitant]
  11. ESOMEPRAZOLE [Concomitant]
  12. LISINOPRIL [Concomitant]
  13. HYDROCHLOROTHIAZIDE [Concomitant]
  14. ATORVASTATIN [Concomitant]

REACTIONS (16)
  - Lichen planus [Unknown]
  - Pruritus [Unknown]
  - Papule [Unknown]
  - Hyperkeratosis [Unknown]
  - Granuloma skin [Unknown]
  - Acanthosis [Unknown]
  - Epidermal necrosis [Unknown]
  - Lymphocytic infiltration [Unknown]
  - Eosinophilic cellulitis [Unknown]
  - Skin lesion [Recovering/Resolving]
  - Rash generalised [Unknown]
  - Biopsy skin abnormal [Unknown]
  - Oral disorder [Unknown]
  - Tongue discolouration [Unknown]
  - Pigmentation buccal [Unknown]
  - Type IV hypersensitivity reaction [Unknown]
